FAERS Safety Report 4763849-1 (Version None)
Quarter: 2005Q3

REPORT INFORMATION
  Report Type: 
  Country: None (occurrence: None)
  Receive Date: 20050908
  Receipt Date: 20050810
  Transmission Date: 20060218
  Serious: Yes (Other)
  Sender: FDA-Public Use
  Company Number: GB-ABBOTT-05P-167-0308088-00

PATIENT
  Age: 25 Year
  Sex: Female

DRUGS (4)
  1. EPILIM CHRONO TABLETS [Suspect]
     Indication: EPILEPSY
     Dates: end: 20040801
  2. CARBAMAZEPINE [Concomitant]
     Indication: EPILEPSY
  3. ASCORBIC ACID [Concomitant]
     Indication: DRUG USE FOR UNKNOWN INDICATION
  4. MULTI-VITAMINS [Concomitant]
     Indication: DRUG USE FOR UNKNOWN INDICATION

REACTIONS (3)
  - CONSTIPATION [None]
  - CONVULSION [None]
  - STOOL ANALYSIS ABNORMAL [None]
